FAERS Safety Report 14568053 (Version 3)
Quarter: 2018Q2

REPORT INFORMATION
  Report Type: Spontaneous
  Country: JP (occurrence: JP)
  Receive Date: 20180223
  Receipt Date: 20180522
  Transmission Date: 20180711
  Serious: Yes (Hospitalization, Other)
  Sender: FDA-Public Use
  Company Number: JP-PFIZER INC-2018071260

PATIENT
  Age: 9 Decade
  Sex: Female
  Weight: 43 kg

DRUGS (13)
  1. GLAKAY [Concomitant]
     Active Substance: MENATETRENONE
  2. EPINASTINE. [Concomitant]
     Active Substance: EPINASTINE HYDROCHLORIDE
  3. FLUTICASONE. [Concomitant]
     Active Substance: FLUTICASONE
  4. LIMAPROST ALFADEX [Concomitant]
     Active Substance: LIMAPROST
  5. RALOXIFENE. [Concomitant]
     Active Substance: RALOXIFENE
  6. BIO-THREE [Concomitant]
     Active Substance: HERBALS
  7. AMLODIPINE [Concomitant]
     Active Substance: AMLODIPINE BESYLATE
  8. FLUTIDE [Concomitant]
     Active Substance: FLUTICASONE PROPIONATE
  9. LYRICA [Concomitant]
     Active Substance: PREGABALIN
  10. VALSARTAN. [Concomitant]
     Active Substance: VALSARTAN
  11. NOIDOUBLE [Concomitant]
     Active Substance: SPIRONOLACTONE
  12. TOVIAZ [Suspect]
     Active Substance: FESOTERODINE FUMARATE
     Indication: NEUROGENIC BLADDER
     Dosage: 4 MG, 1X/DAY
     Route: 048
     Dates: start: 201706
  13. NEUROTROPIN /06251301/ [Concomitant]
     Active Substance: ORYCTOLAGUS CUNICULUS SKIN

REACTIONS (5)
  - Decreased appetite [Unknown]
  - Vertigo [Recovering/Resolving]
  - Vomiting [Unknown]
  - Urinary retention [Recovered/Resolved]
  - Pneumonia [Unknown]

NARRATIVE: CASE EVENT DATE: 201707
